FAERS Safety Report 4389310-4 (Version None)
Quarter: 2004Q3

REPORT INFORMATION
  Report Type: 
  Country: None (occurrence: None)
  Receive Date: 20040702
  Receipt Date: 20040206
  Transmission Date: 20050211
  Serious: Yes (Other)
  Sender: FDA-Public Use
  Company Number: JP-ROCHE-359071

PATIENT
  Age: 9 Year
  Sex: Female

DRUGS (3)
  1. TAMIFLU [Suspect]
     Dosage: DOSAGE REGIMEN REPORTED AS 3.6G/2 X 2 FORM: REPORTED AS DRY SYRUP.
     Route: 048
     Dates: start: 20040201, end: 20040204
  2. HUSCODE [Concomitant]
     Dosage: FORM: REPORTED AS DRY SYRUP.
     Route: 048
  3. MUCOSOLVAN [Concomitant]
     Dosage: FORM: REPORTED AS DRY SYRUP.
     Route: 048

REACTIONS (1)
  - TREMOR [None]
